FAERS Safety Report 24801426 (Version 1)
Quarter: 2025Q1

REPORT INFORMATION
  Report Type: Spontaneous
  Country: US (occurrence: US)
  Receive Date: 20250102
  Receipt Date: 20250102
  Transmission Date: 20250409
  Serious: No
  Sender: MYLAN
  Company Number: US-MYLANLABS-2024M1117382

PATIENT
  Age: 70 Year
  Sex: Female

DRUGS (1)
  1. BREYNA [Suspect]
     Active Substance: BUDESONIDE\FORMOTEROL FUMARATE
     Indication: Asthma
     Dosage: BID (TWICE A DAY)
     Route: 055

REACTIONS (3)
  - Device delivery system issue [Unknown]
  - Device malfunction [Unknown]
  - Wrong technique in device usage process [Unknown]

NARRATIVE: CASE EVENT DATE: 20241201
